FAERS Safety Report 4937621-3 (Version None)
Quarter: 2006Q1

REPORT INFORMATION
  Report Type: 
  Country: None (occurrence: None)
  Receive Date: 20060309
  Receipt Date: 20041109
  Transmission Date: 20060701
  Serious: Yes (Hospitalization, Other)
  Sender: FDA-Public Use
  Company Number: US-MERCK-0411USA01723

PATIENT
  Age: 73 Year
  Sex: Female
  Weight: 59 kg

DRUGS (18)
  1. VIOXX [Suspect]
     Indication: ARTHRITIS
     Route: 048
     Dates: start: 20020208, end: 20021221
  2. INDERAL [Concomitant]
     Indication: HYPERTENSION
     Route: 065
     Dates: start: 19950101, end: 20030101
  3. ASPIRIN [Concomitant]
     Indication: CEREBROVASCULAR ACCIDENT PROPHYLAXIS
     Route: 065
     Dates: start: 20020101, end: 20030101
  4. MAXZIDE [Concomitant]
     Indication: HYPERTENSION
     Route: 065
     Dates: start: 20020601, end: 20031101
  5. FOSAMAX [Concomitant]
     Indication: OSTEOPOROSIS
     Route: 065
  6. ALTACE [Concomitant]
     Indication: HYPERTENSION
     Route: 065
     Dates: start: 20020501, end: 20031101
  7. QUININE SULFATE [Concomitant]
     Indication: PAIN
     Route: 065
     Dates: start: 20020701, end: 20020730
  8. CHLORAZEPATE [Concomitant]
     Indication: ANXIETY
     Route: 065
  9. LIPITOR [Concomitant]
     Indication: BLOOD CHOLESTEROL INCREASED
     Route: 065
     Dates: start: 20020901, end: 20031101
  10. NITROFURANTOIN [Concomitant]
     Indication: URINARY TRACT INFECTION
     Route: 065
  11. ZOLOFT [Concomitant]
     Indication: DEPRESSION
     Route: 065
  12. CIPRO [Concomitant]
     Indication: BACTERIAL INFECTION
     Route: 065
  13. PROMETHAZINE [Concomitant]
     Route: 065
  14. LEVAQUIN [Concomitant]
     Indication: BACTERIAL INFECTION
     Route: 065
  15. FUROSEMIDE [Concomitant]
     Indication: FLUID RETENTION
     Route: 065
     Dates: start: 20021201, end: 20021201
  16. GUAIFENESIN [Concomitant]
     Indication: BRONCHITIS
     Route: 065
  17. TRAMADOLOR [Concomitant]
     Route: 065
     Dates: start: 20010101, end: 20030101
  18. PRILOSEC [Concomitant]
     Route: 065

REACTIONS (22)
  - ANGINA PECTORIS [None]
  - ANXIETY DISORDER [None]
  - BACTERIAL INFECTION [None]
  - BLOOD CHOLESTEROL INCREASED [None]
  - BRONCHITIS [None]
  - CEREBROVASCULAR ACCIDENT [None]
  - DEEP VEIN THROMBOSIS [None]
  - DEPRESSION [None]
  - EXTRASYSTOLES [None]
  - FALL [None]
  - FLUID RETENTION [None]
  - HEART RATE INCREASED [None]
  - HYPERHIDROSIS [None]
  - HYPERTENSION [None]
  - PAIN [None]
  - PALPITATIONS [None]
  - PULMONARY EMBOLISM [None]
  - SYNCOPE [None]
  - TACHYARRHYTHMIA [None]
  - TRANSIENT ISCHAEMIC ATTACK [None]
  - TREMOR [None]
  - URINARY TRACT INFECTION [None]
